FAERS Safety Report 11852404 (Version 4)
Quarter: 2019Q3

REPORT INFORMATION
  Report Type: Spontaneous
  Country: US (occurrence: US)
  Receive Date: 20151218
  Receipt Date: 20190718
  Transmission Date: 20191004
  Serious: Yes (Other)
  Sender: FDA-Public Use
  Company Number: US-PFIZER INC-2015435911

PATIENT
  Age: 75 Year
  Sex: Female
  Weight: 54 kg

DRUGS (1)
  1. LATANOPROST. [Suspect]
     Active Substance: LATANOPROST
     Dosage: 1 DROP AT NIGHT IN BOTH EYES
     Route: 047

REACTIONS (3)
  - Drug ineffective [Unknown]
  - Intraocular pressure increased [Unknown]
  - Product substitution issue [Unknown]
